FAERS Safety Report 9735728 (Version 1)
Quarter: 2013Q4

REPORT INFORMATION
  Report Type: Report from Study
  Country: FR (occurrence: FR)
  Receive Date: 20131206
  Receipt Date: 20131206
  Transmission Date: 20140711
  Serious: Yes (Hospitalization)
  Sender: FDA-Public Use
  Company Number: FR-GLAXOSMITHKLINE-B0937540B

PATIENT
  Age: 67 Year
  Sex: Male
  Weight: 82 kg

DRUGS (7)
  1. OFATUMUMAB [Suspect]
     Indication: CHRONIC LYMPHOCYTIC LEUKAEMIA
     Dosage: 2000MG CYCLIC
     Route: 042
     Dates: start: 20130730, end: 20130903
  2. PARACETAMOL [Concomitant]
     Dates: start: 20130730
  3. POLARAMINE [Concomitant]
     Dates: start: 20130730
  4. SOLUPRED [Concomitant]
  5. MOPRAL [Concomitant]
  6. RASBURICASE [Concomitant]
     Dates: start: 20130730
  7. ZELITREX [Concomitant]
     Dates: start: 20130827

REACTIONS (1)
  - Varicella [Recovered/Resolved with Sequelae]
